FAERS Safety Report 9402023 (Version 4)
Quarter: 2020Q2

REPORT INFORMATION
  Report Type: Report from Study
  Country: AR (occurrence: AR)
  Receive Date: 20130716
  Receipt Date: 20200522
  Transmission Date: 20200714
  Serious: Yes (Other)
  Sender: FDA-Public Use
  Company Number: PHHY2013AR074403

PATIENT
  Age: 26 Year
  Sex: Female

DRUGS (2)
  1. TASIGNA [Suspect]
     Active Substance: NILOTINIB
     Dosage: 800 MG, DAILY
     Route: 048
     Dates: start: 201301
  2. TASIGNA [Suspect]
     Active Substance: NILOTINIB
     Indication: CHRONIC MYELOID LEUKAEMIA
     Dosage: 800 MG, DAILY
     Route: 048
     Dates: start: 20110615

REACTIONS (7)
  - Furuncle [Recovered/Resolved]
  - Menstruation irregular [Recovering/Resolving]
  - Herpes zoster [Not Recovered/Not Resolved]
  - Bronchospasm [Not Recovered/Not Resolved]
  - Blood prolactin increased [Unknown]
  - Speech disorder [Not Recovered/Not Resolved]
  - Cyst [Unknown]

NARRATIVE: CASE EVENT DATE: 201307
